FAERS Safety Report 7127808-6 (Version None)
Quarter: 2010Q4

REPORT INFORMATION
  Report Type: 
  Country: None (occurrence: None)
  Receive Date: 20101130
  Receipt Date: 20091223
  Transmission Date: 20110411
  Serious: No
  Sender: FDA-Public Use
  Company Number: 2009BI042073

PATIENT
  Sex: Female

DRUGS (8)
  1. TYSABRI [Suspect]
     Indication: MULTIPLE SCLEROSIS
     Route: 042
     Dates: start: 20050221, end: 20050221
  2. TYSABRI [Suspect]
     Route: 042
     Dates: start: 20061121, end: 20080229
  3. TYSABRI [Suspect]
     Route: 042
     Dates: start: 20081205, end: 20091201
  4. TYSABRI [Suspect]
     Route: 042
     Dates: start: 20091201
  5. TYSABRI [Suspect]
     Route: 042
     Dates: start: 20100101, end: 20101001
  6. TYSABRI [Suspect]
     Route: 042
     Dates: start: 20101001
  7. AVONEX [Concomitant]
     Indication: MULTIPLE SCLEROSIS
     Route: 030
     Dates: start: 20040725, end: 20061011
  8. AVONEX [Concomitant]
     Route: 030
     Dates: start: 20080413, end: 20081109

REACTIONS (8)
  - CYSTITIS [None]
  - FATIGUE [None]
  - FEELING ABNORMAL [None]
  - GAIT DISTURBANCE [None]
  - HERPES ZOSTER [None]
  - SKIN PAPILLOMA [None]
  - VOMITING [None]
  - WEIGHT DECREASED [None]
